FAERS Safety Report 9287361 (Version 1)
Quarter: 2013Q2

REPORT INFORMATION
  Report Type: Report from Study
  Country: CA (occurrence: CA)
  Receive Date: 20130514
  Receipt Date: 20130514
  Transmission Date: 20140414
  Serious: Yes (Other)
  Sender: FDA-Public Use
  Company Number: CA-ROCHE-1223959

PATIENT
  Age: 50 Year
  Sex: Female
  Weight: 95.7 kg

DRUGS (6)
  1. RITUXAN [Suspect]
     Indication: RHEUMATOID ARTHRITIS
     Route: 042
  2. SYNTHROID [Concomitant]
  3. IMOVANE [Concomitant]
  4. NEXIUM [Concomitant]
  5. TRAMACET [Concomitant]
     Route: 065
  6. TYLENOL [Concomitant]
     Route: 065

REACTIONS (2)
  - Gastrointestinal disorder [Not Recovered/Not Resolved]
  - Arthralgia [Not Recovered/Not Resolved]
